FAERS Safety Report 9390681 (Version 4)
Quarter: 2014Q1

REPORT INFORMATION
  Report Type: Report from Study
  Country: US (occurrence: US)
  Receive Date: 20130709
  Receipt Date: 20140121
  Transmission Date: 20141002
  Serious: Yes (Hospitalization)
  Sender: FDA-Public Use
  Company Number: US-JNJFOC-20130620639

PATIENT
  Age: 16 Year
  Sex: Female
  Weight: 62.3 kg

DRUGS (12)
  1. REMICADE [Suspect]
     Indication: CROHN^S DISEASE
     Route: 042
     Dates: start: 20131113
  2. REMICADE [Suspect]
     Indication: CROHN^S DISEASE
     Route: 042
     Dates: start: 20100831
  3. 5-ASA [Concomitant]
     Route: 048
  4. PRILOSEC [Concomitant]
     Route: 065
  5. FERROUS SULFATE [Concomitant]
     Route: 065
  6. OYSCO [Concomitant]
     Route: 065
  7. ASTHMANEX (MOMETASONE) [Concomitant]
     Route: 065
  8. ALBUTEROL [Concomitant]
     Route: 065
  9. HYDROCORTISONE [Concomitant]
     Route: 065
  10. PRENATAL VITAMINS [Concomitant]
     Route: 065
  11. CETIRIZINE [Concomitant]
     Route: 065
  12. FLAGYL [Concomitant]
     Route: 065

REACTIONS (4)
  - Abdominal abscess [Recovered/Resolved]
  - Fistula [Recovered/Resolved]
  - Abdominal abscess [Recovered/Resolved]
  - Fistula [Recovered/Resolved]
